FAERS Safety Report 7794899-9 (Version None)
Quarter: 2011Q4

REPORT INFORMATION
  Report Type: 
  Country: None (occurrence: None)
  Receive Date: 20111004
  Receipt Date: 20110921
  Transmission Date: 20120403
  Serious: Yes (Hospitalization)
  Sender: FDA-Public Use
  Company Number: PHHY2011FR84606

PATIENT
  Sex: Male

DRUGS (4)
  1. BROMAZEPAM [Concomitant]
  2. ASPIRIN [Concomitant]
  3. RASILEZ [Suspect]
     Indication: HYPERTENSION
     Dosage: UNK
     Dates: start: 20110701
  4. NEURONTIN [Concomitant]

REACTIONS (5)
  - INAPPROPRIATE ANTIDIURETIC HORMONE SECRETION [None]
  - ALANINE AMINOTRANSFERASE INCREASED [None]
  - HYPONATRAEMIA [None]
  - CHEST PAIN [None]
  - DYSPNOEA [None]
